FAERS Safety Report 6885296-9 (Version None)
Quarter: 2010Q3

REPORT INFORMATION
  Report Type: 
  Country: None (occurrence: None)
  Receive Date: 20100729
  Receipt Date: 20100729
  Transmission Date: 20110219
  Serious: Yes (Disabling)
  Sender: FDA-Public Use
  Company Number: None

PATIENT
  Age: 58 Year
  Sex: Male

DRUGS (1)
  1. HEPARIN [Suspect]
     Indication: THROMBOSIS PROPHYLAXIS
     Dates: start: 20100214, end: 20100224

REACTIONS (3)
  - EXTRADURAL HAEMATOMA [None]
  - PARALYSIS [None]
  - SENSORY LOSS [None]
